FAERS Safety Report 21909016 (Version 1)
Quarter: 2023Q1

REPORT INFORMATION
  Report Type: Spontaneous
  Country: US (occurrence: None)
  Receive Date: 20230124
  Receipt Date: 20230124
  Transmission Date: 20230418
  Serious: Yes (Disabling, Other)
  Sender: FDA-Public Use
  Company Number: None

PATIENT
  Age: 77 Year
  Sex: Male
  Weight: 85.5 kg

DRUGS (16)
  1. LEVOFLOXACIN [Suspect]
     Active Substance: LEVOFLOXACIN
     Indication: Sinusitis
     Dosage: OTHER QUANTITY : 5 TABLET(S);?FREQUENCY : DAILY;?
     Route: 048
  2. LEVOFLOXACIN [Suspect]
     Active Substance: LEVOFLOXACIN
     Indication: Pneumonia
  3. LEVOFLOXACIN [Suspect]
     Active Substance: LEVOFLOXACIN
     Indication: Cough
  4. C-Pap [Concomitant]
  5. AMLODIPINE [Concomitant]
     Active Substance: AMLODIPINE BESYLATE
  6. VALSARTAN [Concomitant]
     Active Substance: VALSARTAN
  7. CLONIDINE [Concomitant]
     Active Substance: CLONIDINE
  8. METOPROLOL [Concomitant]
     Active Substance: METOPROLOL
  9. SIMVASTATIN [Concomitant]
     Active Substance: SIMVASTATIN
  10. SPIRONOLACTONE [Concomitant]
     Active Substance: SPIRONOLACTONE
  11. IC Klor-Con [Concomitant]
  12. VESICARE [Concomitant]
     Active Substance: SOLIFENACIN SUCCINATE
  13. TAMSULOSIN [Concomitant]
     Active Substance: TAMSULOSIN
  14. FINASTERIDE [Concomitant]
     Active Substance: FINASTERIDE
  15. DAPSONE [Concomitant]
     Active Substance: DAPSONE
  16. COENZYME Q10 [Concomitant]
     Active Substance: DIETARY SUPPLEMENT\UBIDECARENONE

REACTIONS (9)
  - Groin pain [None]
  - Arthralgia [None]
  - Feeling jittery [None]
  - Hypoaesthesia [None]
  - Headache [None]
  - Confusional state [None]
  - Disturbance in attention [None]
  - Asthenia [None]
  - Muscle strain [None]

NARRATIVE: CASE EVENT DATE: 20230119
